FAERS Safety Report 4286119-7 (Version None)
Quarter: 2004Q1

REPORT INFORMATION
  Report Type: 
  Country: None (occurrence: None)
  Receive Date: 20040204
  Receipt Date: 20040204
  Transmission Date: 20041129
  Serious: Yes (Hospitalization)
  Sender: FDA-Public Use
  Company Number: None

PATIENT
  Sex: Male

DRUGS (2)
  1. VANCOMYCIN [Suspect]
     Dosage: 100 MG QD INTRAVENOUS
     Route: 042
     Dates: start: 20031029, end: 20031101
  2. AZTREONAM [Suspect]
     Dosage: 2000MG Q 8 HOURS INTRAVENOUS
     Route: 042
     Dates: start: 20031101, end: 20031101

REACTIONS (1)
  - PYREXIA [None]
